FAERS Safety Report 8740714 (Version 2)
Quarter: 2012Q4

REPORT INFORMATION
  Report Type: Report from Study
  Country: DE (occurrence: DE)
  Receive Date: 20120823
  Receipt Date: 20121022
  Transmission Date: 20130627
  Serious: Yes (Hospitalization)
  Sender: FDA-Public Use
  Company Number: DE-ROCHE-CID000000002125886

PATIENT
  Age: 61 Year
  Sex: Female
  Weight: 97 kg

DRUGS (2)
  1. TOCILIZUMAB [Suspect]
     Indication: RHEUMATOID ARTHRITIS
     Route: 042
     Dates: start: 20111128, end: 20120618
  2. PREDNISOLON [Suspect]
     Indication: RHEUMATOID ARTHRITIS
     Route: 048
     Dates: start: 200908

REACTIONS (2)
  - Pyelonephritis [Recovered/Resolved]
  - Cystitis haemorrhagic [Recovered/Resolved]
